FAERS Safety Report 15093031 (Version 2)
Quarter: 2018Q3

REPORT INFORMATION
  Report Type: Spontaneous
  Country: US (occurrence: US)
  Receive Date: 20180629
  Receipt Date: 20180722
  Transmission Date: 20181010
  Serious: No
  Sender: FDA-Public Use
  Company Number: US-JNJFOC-20180613590

PATIENT
  Sex: Male
  Weight: 126.1 kg

DRUGS (1)
  1. DURAGESIC [Suspect]
     Active Substance: FENTANYL
     Indication: PAIN
     Route: 062
     Dates: start: 2013

REACTIONS (2)
  - Drug dose omission [Not Recovered/Not Resolved]
  - Product adhesion issue [Not Recovered/Not Resolved]
